FAERS Safety Report 5891989-2 (Version None)
Quarter: 2008Q3

REPORT INFORMATION
  Report Type: 
  Country: None (occurrence: None)
  Receive Date: 20080922
  Receipt Date: 20080912
  Transmission Date: 20090109
  Serious: Yes (Death, Other)
  Sender: FDA-Public Use
  Company Number: JP-B.I. PHARMACEUTICALS,INC./RIDGEFIELD-2008-DE-05247GD

PATIENT
  Age: 82 Year
  Sex: Male

DRUGS (6)
  1. MOBIC [Suspect]
     Dosage: 10MG
     Route: 048
     Dates: start: 20070713, end: 20070731
  2. WARFARIN SODIUM [Suspect]
     Indication: JUGULAR VEIN THROMBOSIS
     Dosage: 3MG
     Route: 048
     Dates: start: 20070314, end: 20070701
  3. WARFARIN SODIUM [Suspect]
     Dosage: 1MG
     Dates: start: 20070719, end: 20070724
  4. WARFARIN SODIUM [Suspect]
     Dosage: 2MG
     Dates: start: 20070724, end: 20070730
  5. WARFARIN SODIUM [Suspect]
     Dosage: 1.5MG
     Dates: start: 20070730, end: 20070731
  6. OMEPRAZOLE [Suspect]
     Dosage: 20MG
     Route: 048
     Dates: start: 20070709, end: 20070724

REACTIONS (4)
  - COAGULATION TEST ABNORMAL [None]
  - DRUG INTERACTION [None]
  - PULMONARY EMBOLISM [None]
  - SMALL INTESTINE CARCINOMA [None]
